FAERS Safety Report 4765830-5 (Version None)
Quarter: 2005Q3

REPORT INFORMATION
  Report Type: 
  Country: None (occurrence: None)
  Receive Date: 20050906
  Receipt Date: 20050822
  Transmission Date: 20060218
  Serious: Yes (Hospitalization, Other)
  Sender: FDA-Public Use
  Company Number: 2005118547

PATIENT
  Age: 26 Year
  Sex: Female

DRUGS (1)
  1. ZOLOFT [Suspect]
     Indication: ANXIETY DISORDER
     Dosage: 50 MG (50 MG, 1 IN 1 D), ORAL
     Route: 048
     Dates: start: 20050101, end: 20050101

REACTIONS (3)
  - CARDIOMEGALY [None]
  - HYPOTHYROIDISM [None]
  - OEDEMA [None]
